FAERS Safety Report 5866555-5 (Version None)
Quarter: 2008Q3

REPORT INFORMATION
  Report Type: 
  Country: None (occurrence: None)
  Receive Date: 20080829
  Receipt Date: 20080829
  Transmission Date: 20090109
  Serious: Yes (Hospitalization)
  Sender: FDA-Public Use
  Company Number: None

PATIENT
  Sex: Male

DRUGS (2)
  1. EFFEXOR XR [Suspect]
     Indication: HOT FLUSH
     Dosage: 75MG 1 CAPSULE DAILY PO
     Route: 048
     Dates: start: 20071209, end: 20080308
  2. SOY PROTEIN/CASEIN [Suspect]
     Indication: HOT FLUSH
     Dosage: 20GM 1 PACKET DAILY PO
     Route: 048
     Dates: start: 20071209, end: 20080308

REACTIONS (1)
  - OSTEOARTHRITIS [None]
